FAERS Safety Report 5697354-5 (Version None)
Quarter: 2008Q2

REPORT INFORMATION
  Report Type: 
  Country: None (occurrence: None)
  Receive Date: 20080408
  Receipt Date: 20080327
  Transmission Date: 20081010
  Serious: Yes (Disabling)
  Sender: FDA-Public Use
  Company Number: US-WYE-H03338108

PATIENT
  Age: 55 Year
  Sex: Male
  Weight: 94.43 kg

DRUGS (8)
  1. EFFEXOR XR [Suspect]
     Indication: EX-SMOKER
     Route: 048
     Dates: start: 20071105, end: 20080228
  2. EFFEXOR XR [Suspect]
     Route: 048
     Dates: start: 20080229, end: 20080306
  3. EFFEXOR XR [Suspect]
     Route: 048
     Dates: start: 20080307, end: 20080313
  4. EFFEXOR XR [Suspect]
     Route: 048
     Dates: start: 20080314, end: 20080320
  5. VYTORIN [Concomitant]
     Indication: BLOOD CHOLESTEROL INCREASED
     Dosage: UNKNOWN
  6. ACETYLSALICYLIC ACID SRT [Concomitant]
     Indication: CORONARY ARTERY DISEASE
  7. OMEGA 3 [Concomitant]
     Indication: BLOOD TRIGLYCERIDES INCREASED
     Dosage: UNKNOWN
  8. METOPROLOL TARTRATE [Concomitant]
     Indication: CORONARY ARTERY DISEASE
     Dosage: UNKNOWN

REACTIONS (6)
  - ABNORMAL DREAMS [None]
  - DRUG WITHDRAWAL SYNDROME [None]
  - IMPAIRED WORK ABILITY [None]
  - OEDEMA PERIPHERAL [None]
  - SOMNOLENCE [None]
  - VERTIGO [None]
